FAERS Safety Report 21439267 (Version 1)
Quarter: 2022Q4

REPORT INFORMATION
  Report Type: Spontaneous
  Country: RU (occurrence: RU)
  Receive Date: 20221011
  Receipt Date: 20221011
  Transmission Date: 20230113
  Serious: Yes (Other)
  Sender: FDA-Public Use
  Company Number: RU-BRACCO-2022RU04212

PATIENT
  Age: 69 Year
  Sex: Male

DRUGS (1)
  1. PROHANCE [Suspect]
     Active Substance: GADOTERIDOL
     Indication: Magnetic resonance imaging
     Dosage: 2793 MG
     Route: 042
     Dates: start: 20211021, end: 20211021

REACTIONS (2)
  - Vomiting [Unknown]
  - Pallor [Unknown]

NARRATIVE: CASE EVENT DATE: 20211021
